FAERS Safety Report 17205560 (Version 3)
Quarter: 2020Q2

REPORT INFORMATION
  Report Type: Report from Study
  Country: None (occurrence: US)
  Receive Date: 20191227
  Receipt Date: 20200414
  Transmission Date: 20200713
  Serious: Yes (Death, Hospitalization)
  Sender: FDA-Public Use
  Company Number: US-ABBVIE-19K-163-3211362-00

PATIENT
  Age: 73 Year
  Sex: Male
  Weight: 62.83 kg

DRUGS (7)
  1. VENCLEXTA [Suspect]
     Active Substance: VENETOCLAX
     Dosage: FOLLOWED BY TWO TAB DAY TWO, FOUR TAB DAY THREE, THEN SIX TAB DAILY
     Route: 048
     Dates: start: 20191103, end: 20191103
  2. VITAMIN B12 [Concomitant]
     Active Substance: CYANOCOBALAMIN
     Indication: PRODUCT USED FOR UNKNOWN INDICATION
  3. ARA-C [Concomitant]
     Active Substance: CYTARABINE
     Indication: ACUTE MYELOID LEUKAEMIA
  4. VENCLEXTA [Suspect]
     Active Substance: VENETOCLAX
     Indication: MYELODYSPLASTIC SYNDROME
     Dosage: FOLLOWED BY TWO TAB DAY TWO, FOUR TAB DAY THREE, THEN SIX TAB DAILY
     Route: 048
     Dates: start: 20191101, end: 20191101
  5. VENCLEXTA [Suspect]
     Active Substance: VENETOCLAX
     Dosage: FOLLOWED BY TWO TAB DAY TWO, FOUR TAB DAY THREE, THEN SIX TAB DAILY
     Route: 048
     Dates: start: 20191104, end: 20191124
  6. FOLIC ACID. [Concomitant]
     Active Substance: FOLIC ACID
     Indication: PRODUCT USED FOR UNKNOWN INDICATION
  7. VENCLEXTA [Suspect]
     Active Substance: VENETOCLAX
     Indication: ACUTE MYELOID LEUKAEMIA
     Dosage: FOLLOWED BY TWO TAB DAY TWO, FOUR TAB DAY THREE, THEN SIX TAB DAILY
     Route: 048
     Dates: start: 20191102, end: 20191102

REACTIONS (5)
  - Arthritis bacterial [Fatal]
  - Off label use [Unknown]
  - Arthralgia [Not Recovered/Not Resolved]
  - Blood calcium decreased [Unknown]
  - Blood sodium decreased [Unknown]

NARRATIVE: CASE EVENT DATE: 2019
